FAERS Safety Report 5333650-9 (Version None)
Quarter: 2007Q2

REPORT INFORMATION
  Report Type: 
  Country: None (occurrence: None)
  Receive Date: 20070306
  Receipt Date: 20061106
  Transmission Date: 20071010
  Serious: Yes (Hospitalization)
  Sender: FDA-Public Use
  Company Number: A03200606711

PATIENT
  Age: 69 Year
  Sex: Male
  Weight: 86.17 kg

DRUGS (7)
  1. PLAVIX [Suspect]
     Indication: CEREBROVASCULAR ACCIDENT
     Dosage: 75 MG QD - ORAL
     Route: 048
     Dates: end: 20061001
  2. ACARBOSE [Concomitant]
  3. GLYBURIDE AND METFORMIN HCL [Concomitant]
  4. METOPROLOL SUCCINATE [Concomitant]
  5. LOSARTAN + HCTZ [Concomitant]
  6. ATORVASTATIN [Concomitant]
  7. ACETYLSALICYLIC ACID SRT [Concomitant]

REACTIONS (2)
  - FATIGUE [None]
  - MYOCARDIAL INFARCTION [None]
